FAERS Safety Report 5113446-3 (Version None)
Quarter: 2006Q3

REPORT INFORMATION
  Report Type: 
  Country: None (occurrence: None)
  Receive Date: 20060920
  Receipt Date: 20060905
  Transmission Date: 20061208
  Serious: Yes (Hospitalization, Other)
  Sender: FDA-Public Use
  Company Number: 2006001385

PATIENT
  Sex: Female

DRUGS (1)
  1. TARCEVA [Suspect]
     Indication: NON-SMALL CELL LUNG CANCER
     Dosage: ORAL
     Route: 048
     Dates: start: 20060615, end: 20060715

REACTIONS (9)
  - ACIDOSIS [None]
  - CHOLESTASIS [None]
  - COMA HEPATIC [None]
  - HEPATIC ENCEPHALOPATHY [None]
  - HEPATIC NECROSIS [None]
  - HIATUS HERNIA [None]
  - HYPOXIA [None]
  - METASTASES TO BONE [None]
  - PLEURAL EFFUSION [None]
